FAERS Safety Report 6344391-3 (Version None)
Quarter: 2009Q3

REPORT INFORMATION
  Report Type: 
  Country: None (occurrence: None)
  Receive Date: 20090821
  Receipt Date: 20090505
  Transmission Date: 20100115
  Serious: No
  Sender: FDA-Public Use
  Company Number: 8045822

PATIENT
  Age: 55 Year
  Sex: Male
  Weight: 84 kg

DRUGS (12)
  1. CIMZIA [Suspect]
     Indication: CROHN'S DISEASE
     Dosage: 400 MG SC
     Route: 058
     Dates: start: 20090201
  2. PREDNISONE [Concomitant]
  3. ASACOL [Concomitant]
  4. IRON + CALCIUM [Concomitant]
  5. ST. JOHN'S ASPIRIN [Concomitant]
  6. LISINOPRIL [Concomitant]
  7. METOPROLOL TARTRATE [Concomitant]
  8. SIMVASTATIN [Concomitant]
  9. LEXAPRO [Concomitant]
  10. NEXIUM [Concomitant]
  11. DICYCLOMINE [Concomitant]
  12. OXYCODONE [Concomitant]

REACTIONS (6)
  - DIARRHOEA [None]
  - HEADACHE [None]
  - MUSCLE SPASMS [None]
  - NAUSEA [None]
  - PAIN [None]
  - PYREXIA [None]
